FAERS Safety Report 10924843 (Version 2)
Quarter: 2015Q2

REPORT INFORMATION
  Report Type: Spontaneous
  Country: US (occurrence: US)
  Receive Date: 20150318
  Receipt Date: 20150524
  Transmission Date: 20150821
  Serious: No
  Sender: FDA-Public Use
  Company Number: US-JNJFOC-20130200266

PATIENT
  Age: 87 Year
  Sex: Female

DRUGS (1)
  1. KETOCONAZOLE 2% [Suspect]
     Active Substance: KETOCONAZOLE
     Indication: PSORIASIS
     Dosage: 3 WEEKS LATER
     Route: 061
     Dates: start: 20120913

REACTIONS (3)
  - Product odour abnormal [Unknown]
  - Hair colour changes [Not Recovered/Not Resolved]
  - Product use issue [Unknown]

NARRATIVE: CASE EVENT DATE: 201209
